FAERS Safety Report 22393946 (Version 1)
Quarter: 2023Q2

REPORT INFORMATION
  Report Type: Spontaneous
  Country: US (occurrence: None)
  Receive Date: 20230601
  Receipt Date: 20230601
  Transmission Date: 20230721
  Serious: No
  Sender: FDA-Public Use
  Company Number: 2023A122669

PATIENT
  Sex: Female

DRUGS (1)
  1. SYMBICORT [Suspect]
     Active Substance: BUDESONIDE\FORMOTEROL FUMARATE DIHYDRATE
     Dosage: 160 UG
     Route: 055
     Dates: start: 2023

REACTIONS (7)
  - Taste disorder [Unknown]
  - Memory impairment [Unknown]
  - Dyspnoea [Unknown]
  - Device delivery system issue [Unknown]
  - Device use issue [Unknown]
  - Product use issue [Unknown]
  - Wrong technique in device usage process [Unknown]
